FAERS Safety Report 20246173 (Version 1)
Quarter: 2021Q4

REPORT INFORMATION
  Report Type: Spontaneous
  Country: US (occurrence: None)
  Receive Date: 20211228
  Receipt Date: 20211228
  Transmission Date: 20220303
  Serious: Yes (Hospitalization)
  Sender: FDA-Public Use
  Company Number: None

PATIENT
  Age: 64 Year
  Sex: Male

DRUGS (3)
  1. YESCARTA [Suspect]
     Active Substance: AXICABTAGENE CILOLEUCEL
     Indication: Follicular lymphoma
     Dosage: FREQUENCY : ONCE;?
     Route: 042
     Dates: start: 20210503, end: 20210503
  2. BENDAMUSTINE [Concomitant]
     Active Substance: BENDAMUSTINE
     Dates: start: 20210428, end: 20210429
  3. MEROPENEM [Concomitant]
     Active Substance: MEROPENEM
     Dates: start: 20210508, end: 20210511

REACTIONS (3)
  - Pyrexia [None]
  - Hypotension [None]
  - Neuropathy peripheral [None]

NARRATIVE: CASE EVENT DATE: 20210508
